FAERS Safety Report 9220184 (Version 1)
Quarter: 2013Q2

REPORT INFORMATION
  Report Type: Spontaneous
  Country: FR (occurrence: PE)
  Receive Date: 20130409
  Receipt Date: 20130409
  Transmission Date: 20140414
  Serious: Yes (Life-Threatening, Hospitalization)
  Sender: FDA-Public Use
  Company Number: FR-PFIZER INC-2013104909

PATIENT
  Age: 36 Year
  Sex: Female

DRUGS (1)
  1. MINIDRIL [Suspect]
     Indication: CONTRACEPTION
     Dosage: 1 DF, 1X/DAY
     Route: 048
     Dates: start: 20121001, end: 20121030

REACTIONS (2)
  - Cerebral venous thrombosis [Recovered/Resolved with Sequelae]
  - Haemorrhagic cerebral infarction [Recovered/Resolved with Sequelae]
